FAERS Safety Report 13078826 (Version 3)
Quarter: 2017Q1

REPORT INFORMATION
  Report Type: Report from Study
  Country: None (occurrence: US)
  Receive Date: 20170102
  Receipt Date: 20170301
  Transmission Date: 20170428
  Serious: Yes (Other)
  Sender: FDA-Public Use
  Company Number: US-ABBVIE-16K-163-1823153-00

PATIENT
  Age: 54 Year
  Sex: Male
  Weight: 92.62 kg

DRUGS (3)
  1. HUMIRA [Suspect]
     Active Substance: ADALIMUMAB
     Indication: PSORIATIC ARTHROPATHY
     Route: 058
     Dates: start: 20160624
  2. DIOVAN [Concomitant]
     Active Substance: VALSARTAN
     Indication: PRODUCT USED FOR UNKNOWN INDICATION
  3. LIPITOR [Concomitant]
     Active Substance: ATORVASTATIN CALCIUM
     Indication: PRODUCT USED FOR UNKNOWN INDICATION

REACTIONS (18)
  - Lumbar spinal stenosis [Not Recovered/Not Resolved]
  - Arthritis infective [Recovered/Resolved]
  - Arthritis infective [Not Recovered/Not Resolved]
  - Thrombosis [Recovered/Resolved]
  - Joint swelling [Recovered/Resolved]
  - Spinal fusion surgery [Not Recovered/Not Resolved]
  - Intervertebral disc degeneration [Not Recovered/Not Resolved]
  - Purulence [Not Recovered/Not Resolved]
  - Arthralgia [Recovered/Resolved]
  - Pruritus [Not Recovered/Not Resolved]
  - Osteoarthritis [Recovered/Resolved]
  - Synovial cyst [Recovered/Resolved]
  - Spinal column stenosis [Not Recovered/Not Resolved]
  - Intervertebral disc protrusion [Recovered/Resolved]
  - Bone pain [Recovered/Resolved]
  - Back pain [Recovered/Resolved]
  - Dry skin [Not Recovered/Not Resolved]
  - Arthralgia [Not Recovered/Not Resolved]

NARRATIVE: CASE EVENT DATE: 201608
